FAERS Safety Report 5134528-6 (Version None)
Quarter: 2006Q4

REPORT INFORMATION
  Report Type: 
  Country: None (occurrence: None)
  Receive Date: 20061019
  Receipt Date: 20061006
  Transmission Date: 20070319
  Serious: Yes (Other)
  Sender: FDA-Public Use
  Company Number: US200610001275

PATIENT
  Age: 66 Year
  Sex: Female

DRUGS (4)
  1. HUMALOG [Suspect]
     Indication: DIABETES MELLITUS
     Dosage: 3 U, WITH MEALS
  2. HUMAN  INSULIN (RDNA ORIGIN) (HUMAN INSULIN (RDNA ORIGIN) UNKNOWN FORM [Suspect]
  3. ILETIN BEEF/PORK PROTAMINE ZINC (INSULIN, ANIMAL BEEF/PORK PROTAMINE Z [Suspect]
  4. LANTUS [Concomitant]

REACTIONS (5)
  - BLOOD GLUCOSE INCREASED [None]
  - CATARACT [None]
  - DIABETIC RETINOPATHY [None]
  - PHARMACEUTICAL PRODUCT COMPLAINT [None]
  - WRONG TECHNIQUE IN DRUG USAGE PROCESS [None]
